FAERS Safety Report 9055844 (Version 1)
Quarter: 2013Q1

REPORT INFORMATION
  Report Type: Spontaneous
  Country: US (occurrence: US)
  Receive Date: 20130206
  Receipt Date: 20130206
  Transmission Date: 20140127
  Serious: No
  Sender: FDA-Public Use
  Company Number: US-ALLERGAN-1203192US

PATIENT
  Age: 74 Year
  Sex: Male

DRUGS (8)
  1. RESTASIS [Suspect]
     Indication: DRY EYE
     Dosage: 2 GTT, BID
     Route: 047
     Dates: start: 20111101
  2. ARTIFICIAL TEARS                   /00445101/ [Concomitant]
     Indication: DRY EYE
     Dosage: 2 GTT, TID
  3. ATENOLOL [Concomitant]
     Indication: HYPERTENSION
     Dosage: 50 MG, BID
     Route: 048
     Dates: start: 1992
  4. LISINOPRIL [Concomitant]
     Indication: HYPERTENSION
     Dosage: 10 MG, QD
     Route: 048
     Dates: start: 1992
  5. LASIX                              /00032601/ [Concomitant]
     Indication: HYPERTENSION
     Dosage: UNK
     Route: 048
  6. ALLOPURINOL [Concomitant]
     Indication: GOUT
  7. POTASSIUM [Suspect]
     Indication: MINERAL SUPPLEMENTATION
  8. ORAL DIABETES MEDICATION - NOS [Concomitant]
     Indication: DIABETES MELLITUS
     Dosage: 2.5 MG, BID
     Route: 048

REACTIONS (4)
  - Type 2 diabetes mellitus [Unknown]
  - Vision blurred [Not Recovered/Not Resolved]
  - Eye discharge [Unknown]
  - Vision blurred [Unknown]
